FAERS Safety Report 5088487-5 (Version None)
Quarter: 2006Q3

REPORT INFORMATION
  Report Type: 
  Country: None (occurrence: None)
  Receive Date: 20060823
  Receipt Date: 20060823
  Transmission Date: 20061208
  Serious: Yes (Other)
  Sender: FDA-Public Use
  Company Number: None

PATIENT
  Sex: Female
  Weight: 58.9676 kg

DRUGS (2)
  1. ALPRAZOLAM [Suspect]
     Indication: ANXIETY
     Dosage: 1 MG 2 1/2 X DAY  EVERY DAY - TAKEN FOR PAST 10-15 YEARS
  2. ALPRAZOLAM [Suspect]
     Indication: PANIC ATTACK
     Dosage: 1 MG 2 1/2 X DAY  EVERY DAY - TAKEN FOR PAST 10-15 YEARS

REACTIONS (3)
  - ANXIETY [None]
  - CONDITION AGGRAVATED [None]
  - DRUG DEPENDENCE [None]
